FAERS Safety Report 20720599 (Version 3)
Quarter: 2022Q2

REPORT INFORMATION
  Report Type: Report from Study
  Country: KR (occurrence: KR)
  Receive Date: 20220418
  Receipt Date: 20220603
  Transmission Date: 20220720
  Serious: Yes (Hospitalization)
  Sender: FDA-Public Use
  Company Number: KR-ABBVIE-22K-090-4360102-00

PATIENT
  Sex: Female
  Weight: 76 kg

DRUGS (53)
  1. MAVYRET [Suspect]
     Active Substance: GLECAPREVIR\PIBRENTASVIR
     Indication: Chronic hepatitis C
     Route: 048
     Dates: start: 20201126, end: 20210120
  2. LORAZEPAM [Concomitant]
     Active Substance: LORAZEPAM
     Indication: Anxiety disorder
     Route: 048
     Dates: start: 2016
  3. ESCITALOPRAM OXALATE [Concomitant]
     Active Substance: ESCITALOPRAM OXALATE
     Indication: Anxiety disorder
     Route: 048
     Dates: start: 2016
  4. HI-LASE [Concomitant]
     Indication: Prophylaxis
     Route: 048
     Dates: start: 2016
  5. BEECOM [Concomitant]
     Indication: Prophylaxis
     Route: 048
     Dates: start: 2016
  6. GODEX [Concomitant]
     Indication: Hepatic cirrhosis
     Route: 048
     Dates: start: 20201119, end: 20201126
  7. GODEX [Concomitant]
     Route: 048
     Dates: start: 20210304
  8. URSODIOL [Concomitant]
     Active Substance: URSODIOL
     Indication: Prophylaxis
     Route: 048
     Dates: start: 20201119, end: 20201126
  9. GLIPTIDE [Concomitant]
     Indication: Diabetes mellitus
     Route: 048
     Dates: start: 20201119, end: 20201126
  10. GLIPTIDE [Concomitant]
     Route: 048
     Dates: start: 20201230, end: 20210112
  11. GLIPTIDE [Concomitant]
     Route: 048
     Dates: start: 20210126, end: 20210128
  12. GLIPTIDE [Concomitant]
     Route: 048
     Dates: start: 20210129, end: 20210224
  13. GLIPTIDE [Concomitant]
     Route: 048
     Dates: start: 20210225
  14. CEFTRIAXONE [Concomitant]
     Active Substance: CEFTRIAXONE
     Indication: Humerus fracture
     Route: 042
     Dates: start: 20201111, end: 202011
  15. LAMINA-G [Concomitant]
     Indication: Gastrooesophageal reflux prophylaxis
     Route: 048
     Dates: start: 20201230, end: 20210112
  16. LACTULOSE [Concomitant]
     Active Substance: LACTULOSE
     Indication: Constipation prophylaxis
     Route: 048
     Dates: start: 20210126, end: 20210126
  17. LACTULOSE [Concomitant]
     Active Substance: LACTULOSE
     Route: 048
     Dates: start: 20210127, end: 20210127
  18. LACTULOSE [Concomitant]
     Active Substance: LACTULOSE
     Route: 048
     Dates: start: 20210131, end: 20210131
  19. LACTULOSE [Concomitant]
     Active Substance: LACTULOSE
     Route: 048
     Dates: start: 20210201, end: 20210223
  20. ESOMEZOLE [Concomitant]
     Indication: Gastritis
     Route: 048
     Dates: start: 20210126, end: 20210126
  21. ESOMEZOLE [Concomitant]
     Route: 048
     Dates: start: 20210128, end: 20210223
  22. VENITOL [Concomitant]
     Indication: Hepatic cirrhosis
     Route: 042
     Dates: start: 20210126, end: 20210130
  23. FERROUS SULFATE\PROTEASE [Concomitant]
     Active Substance: FERROUS SULFATE\PROTEASE
     Indication: Prophylaxis
     Route: 048
     Dates: start: 20210201, end: 20210223
  24. ALBUMIN HUMAN [Concomitant]
     Active Substance: ALBUMIN HUMAN
     Indication: Hypoalbuminaemia
     Dosage: 100
     Route: 042
     Dates: start: 20210201, end: 20210201
  25. ALBUMIN HUMAN [Concomitant]
     Active Substance: ALBUMIN HUMAN
     Dosage: 100
     Route: 042
     Dates: start: 20210204, end: 20210204
  26. ALBUMIN HUMAN [Concomitant]
     Active Substance: ALBUMIN HUMAN
     Dosage: 100
     Route: 042
     Dates: start: 20210208, end: 20210208
  27. PENNEL [Concomitant]
     Indication: Hepatic cirrhosis
     Route: 048
     Dates: start: 20210205, end: 20210223
  28. COMBIFLEX PERI [Concomitant]
     Indication: Parenteral nutrition
     Route: 042
     Dates: start: 20210223, end: 20210223
  29. COMBIFLEX PERI [Concomitant]
     Route: 042
     Dates: start: 20210225, end: 20210225
  30. MIDAZOLAM [Concomitant]
     Active Substance: MIDAZOLAM
     Indication: Oesophagogastroduodenoscopy
     Route: 042
     Dates: start: 20210223, end: 20210223
  31. MIDAZOLAM [Concomitant]
     Active Substance: MIDAZOLAM
     Route: 042
     Dates: start: 20210225, end: 20210225
  32. BROPIUM [Concomitant]
     Indication: Colonoscopy
     Route: 042
     Dates: start: 20210223, end: 20210223
  33. ORNITHINE ASPARTATE [Concomitant]
     Active Substance: ORNITHINE ASPARTATE
     Indication: Product used for unknown indication
     Dates: start: 20210223, end: 20210223
  34. ORNITHINE ASPARTATE [Concomitant]
     Active Substance: ORNITHINE ASPARTATE
     Dates: start: 20210225, end: 20210225
  35. INSTILLAGEL [Concomitant]
     Active Substance: CHLORHEXIDINE GLUCONATE\LIDOCAINE HYDROCHLORIDE
     Indication: Product used for unknown indication
     Route: 062
     Dates: start: 20210223, end: 20210223
  36. PANTOPRAZOLE SODIUM [Concomitant]
     Active Substance: PANTOPRAZOLE SODIUM
     Indication: Product used for unknown indication
     Dosage: 280
     Route: 015
     Dates: start: 20210223, end: 20210223
  37. VITAMINS [Concomitant]
     Active Substance: VITAMINS
     Indication: Product used for unknown indication
     Dosage: 1
     Route: 015
     Dates: start: 20210223, end: 20210223
  38. NALOXONE [Concomitant]
     Active Substance: NALOXONE
     Indication: Product used for unknown indication
     Route: 048
     Dates: start: 20210223, end: 20210224
  39. GASOCOL [Concomitant]
     Indication: Product used for unknown indication
     Route: 048
     Dates: start: 20210223, end: 20210224
  40. MEPERIDINE HYDROCHLORIDE [Concomitant]
     Active Substance: MEPERIDINE HYDROCHLORIDE
     Indication: Product used for unknown indication
     Route: 042
     Dates: start: 20210224, end: 20210224
  41. CLEANVIEWAL [Concomitant]
     Indication: Product used for unknown indication
     Dosage: 160
     Route: 048
     Dates: start: 20210224, end: 20210224
  42. AMLODIPINE BESYLATE\OLMESARTAN MEDOXOMIL [Concomitant]
     Active Substance: AMLODIPINE BESYLATE\OLMESARTAN MEDOXOMIL
     Indication: Product used for unknown indication
     Dosage: 0.5/20 MG
     Route: 048
     Dates: start: 20210224, end: 20210224
  43. MECKOOL [Concomitant]
     Indication: Product used for unknown indication
     Route: 042
     Dates: start: 20210225, end: 20210225
  44. BEECOM HEXA [Concomitant]
     Indication: Product used for unknown indication
     Dosage: 2
     Route: 042
     Dates: start: 20210225, end: 20210225
  45. ASCORBIC ACID [Concomitant]
     Active Substance: ASCORBIC ACID
     Indication: Product used for unknown indication
     Dosage: 300
     Route: 042
     Dates: start: 20210225, end: 20210225
  46. KCL [Concomitant]
     Active Substance: POTASSIUM CHLORIDE
     Indication: Product used for unknown indication
     Dosage: 40MEQ/20ML
     Route: 042
     Dates: start: 20210225, end: 20210226
  47. LAMINA-G [Concomitant]
     Indication: Product used for unknown indication
     Route: 042
     Dates: start: 20210225, end: 20210304
  48. ESOMEZOLE [Concomitant]
     Indication: Product used for unknown indication
     Route: 042
     Dates: start: 20210225, end: 20210225
  49. ESOMEZOLE [Concomitant]
     Route: 042
     Dates: start: 20210226
  50. AMLODIPINE OROTATE [Concomitant]
     Active Substance: AMLODIPINE OROTATE
     Indication: Product used for unknown indication
     Dosage: 10
     Route: 048
     Dates: start: 20210225, end: 20210225
  51. AMLODIPINE OROTATE [Concomitant]
     Active Substance: AMLODIPINE OROTATE
     Dosage: 5
     Route: 048
     Dates: start: 20210226
  52. POTASSIUM CHLORIDE [Concomitant]
     Active Substance: POTASSIUM CHLORIDE
     Indication: Product used for unknown indication
     Dosage: 1800
     Route: 048
     Dates: start: 20210226, end: 20210304
  53. POLYBUTINE [Concomitant]
     Indication: Product used for unknown indication
     Dosage: 200
     Route: 048
     Dates: start: 20210304

REACTIONS (2)
  - Arthritis bacterial [Recovering/Resolving]
  - Osteomyelitis [Recovering/Resolving]

NARRATIVE: CASE EVENT DATE: 20201101
